FAERS Safety Report 7827263-4 (Version None)
Quarter: 2011Q4

REPORT INFORMATION
  Report Type: 
  Country: None (occurrence: None)
  Receive Date: 20111017
  Receipt Date: 20110929
  Transmission Date: 20120403
  Serious: Yes (Other)
  Sender: FDA-Public Use
  Company Number: GER/UKI/11/0021251

PATIENT
  Age: 48 Year
  Sex: Male

DRUGS (2)
  1. SERTRALINE HYDROCHLORIDE [Suspect]
     Indication: PRODUCT USED FOR UNKNOWN INDICATION
  2. CITALOPRAM HYDROBROMIDE [Suspect]
     Indication: PRODUCT USED FOR UNKNOWN INDICATION

REACTIONS (12)
  - LETHARGY [None]
  - DRUG INEFFECTIVE [None]
  - AGGRESSION [None]
  - CONFUSIONAL STATE [None]
  - NIGHTMARE [None]
  - POOR PERSONAL HYGIENE [None]
  - ANXIETY [None]
  - TERMINAL INSOMNIA [None]
  - MUSCLE SPASMS [None]
  - DISORIENTATION [None]
  - DECREASED INTEREST [None]
  - LIBIDO DISORDER [None]
